FAERS Safety Report 11330665 (Version 1)
Quarter: 2015Q3

REPORT INFORMATION
  Report Type: Spontaneous
  Country: US (occurrence: US)
  Receive Date: 20150803
  Receipt Date: 20150803
  Transmission Date: 20151125
  Serious: Yes (Hospitalization, Other)
  Sender: FDA-Public Use
  Company Number: US-GLAXOSMITHKLINE-US2015GSK109461

PATIENT
  Age: 45 Year
  Sex: Female

DRUGS (1)
  1. ADVAIR HFA [Suspect]
     Active Substance: FLUTICASONE PROPIONATE\SALMETEROL XINAFOATE
     Indication: CHRONIC OBSTRUCTIVE PULMONARY DISEASE
     Dosage: UNK
     Dates: start: 2006

REACTIONS (7)
  - Chest pain [Unknown]
  - Transfusion [Unknown]
  - Lung disorder [Unknown]
  - Colonoscopy [Unknown]
  - Urticaria [Unknown]
  - Haemorrhage [Unknown]
  - Hysterectomy [Unknown]

NARRATIVE: CASE EVENT DATE: 20150313
